FAERS Safety Report 13573347 (Version 4)
Quarter: 2017Q2

REPORT INFORMATION
  Report Type: Spontaneous
  Country: TR (occurrence: TR)
  Receive Date: 20170523
  Receipt Date: 20170621
  Transmission Date: 20170830
  Serious: Yes (Other)
  Sender: FDA-Public Use
  Company Number: TR-PFIZER INC-2017217600

PATIENT
  Age: 10 Year
  Sex: Male

DRUGS (8)
  1. METHOTREXATE SODIUM. [Suspect]
     Active Substance: METHOTREXATE SODIUM
     Indication: PRECURSOR B-LYMPHOBLASTIC LYMPHOMA
     Dosage: 1000 MG/M2, DAILY
  2. DAUNORUBICIN HCL [Suspect]
     Active Substance: DAUNORUBICIN HYDROCHLORIDE
     Indication: PRECURSOR B-LYMPHOBLASTIC LYMPHOMA
     Dosage: 30 MG/M2, DAILY
  3. 6-MERCAPTOPURINE MONOHYDRATE [Suspect]
     Active Substance: MERCAPTOPURINE
     Indication: PRECURSOR B-LYMPHOBLASTIC LYMPHOMA
     Dosage: 25 MG/M2, DAILY
  4. PREDNISOLONE. [Suspect]
     Active Substance: PREDNISOLONE
     Indication: PRECURSOR B-LYMPHOBLASTIC LYMPHOMA
     Dosage: 60 MG/M2, DAILY
  5. L-ASPARAGINASE [Suspect]
     Active Substance: ASPARAGINASE
     Indication: PRECURSOR B-LYMPHOBLASTIC LYMPHOMA
     Dosage: 5000 U/M2, DAILY
  6. VINCRISTINE SULFATE. [Suspect]
     Active Substance: VINCRISTINE SULFATE
     Indication: PRECURSOR B-LYMPHOBLASTIC LYMPHOMA
     Dosage: 1.5 MG/M2, DAILY
  7. CYTARABINE. [Suspect]
     Active Substance: CYTARABINE
     Indication: PRECURSOR B-LYMPHOBLASTIC LYMPHOMA
     Dosage: 60 MG/M2, DAILY
  8. CYCLOPHOSPHAMIDE. [Suspect]
     Active Substance: CYCLOPHOSPHAMIDE
     Indication: PRECURSOR B-LYMPHOBLASTIC LYMPHOMA
     Dosage: 1000 MG/M2, DAILY

REACTIONS (3)
  - Malnutrition [Unknown]
  - Inappropriate antidiuretic hormone secretion [Unknown]
  - Vomiting [Unknown]
